FAERS Safety Report 13610066 (Version 1)
Quarter: 2017Q2

REPORT INFORMATION
  Report Type: Other
  Country: GB (occurrence: US)
  Receive Date: 20170603
  Receipt Date: 20170603
  Transmission Date: 20170830
  Serious: Yes (Life-Threatening, Hospitalization, Other)
  Sender: FDA-Public Use
  Company Number: US-INTERNATIONAL MEDICATION SYSTEMS, LIMITED-2021529

PATIENT
  Age: 19 Year
  Sex: Female

DRUGS (4)
  1. EPINEPHRINE 0.33 MG/L IN ARTHROSCOPIC FLUID [Suspect]
     Active Substance: EPINEPHRINE
     Indication: ARTHROSCOPIC SURGERY
     Route: 014
  2. 1.5% MEPIVACAINE [Concomitant]
  3. PROPOFOL. [Concomitant]
     Active Substance: PROPOFOL
  4. MIDAZOLAM [Concomitant]
     Active Substance: MIDAZOLAM HYDROCHLORIDE

REACTIONS (5)
  - Tachypnoea [Recovered/Resolved]
  - Tachycardia [Recovered/Resolved]
  - Oxygen saturation decreased [Recovered/Resolved]
  - Hypertension [Recovered/Resolved]
  - Pulmonary oedema [Recovered/Resolved]
